FAERS Safety Report 21554161 (Version 1)
Quarter: 2022Q4

REPORT INFORMATION
  Report Type: Spontaneous
  Country: CZ (occurrence: None)
  Receive Date: 20221104
  Receipt Date: 20221104
  Transmission Date: 20230112
  Serious: Yes (Other)
  Sender: FDA-Public Use
  Company Number: CZ-ROCHE-3209745

PATIENT
  Age: 47 Year
  Sex: Male

DRUGS (11)
  1. PEGASYS [Suspect]
     Active Substance: PEGINTERFERON ALFA-2A
     Indication: Polycythaemia vera
     Dosage: 135 MICROGRAM 45..90..180 MCG FOR  WEEK. LATER THE DOSE WAS LOWER DUE TO AE TO 135 MCG EVERY 10D, LA
     Route: 058
     Dates: start: 20210513, end: 20221011
  2. METHOTREXATE SODIUM [Suspect]
     Active Substance: METHOTREXATE SODIUM
     Indication: Sarcoidosis
     Dosage: 10 MILLIGRAM EVERY 1 WEEK(S) 10MG ONCE A WEEK, DISCONTINUED ON JUBE 6TH, 2021, FOR SEVERE COVID19 PN
     Route: 048
     Dates: start: 20210415, end: 20210606
  3. DIETARY SUPPLEMENT\HERBALS\MILK THISTLE [Concomitant]
     Active Substance: DIETARY SUPPLEMENT\HERBALS\MILK THISTLE
     Dosage: 50 MILLIGRAM EVERY 1 DAY(S) 1-0-0 .
     Dates: start: 20220915, end: 20221012
  4. PREDNISONE [Concomitant]
     Active Substance: PREDNISONE
     Dosage: 20 MILLIGRAM EVERY 1 DAY(S) THE DOSE HAS BEEN ADJUSTED AS PER PULMONOLOGIST. AT THE TIME OF THIS REP
     Dates: start: 20111005, end: 20221012
  5. PERINDOPRIL [Concomitant]
     Active Substance: PERINDOPRIL
     Dosage: 8 MILLIGRAM EVERY 1 DAY(S) 1-0-1
  6. FOLIC ACID [Concomitant]
     Active Substance: FOLIC ACID
     Dosage: EVERY 1 WEEK(S) 2-0-0,?ONCE A WEEK, EVERY?SATURDAY
  7. VIGANTOL [Concomitant]
     Dosage: 40 DROP (1/12 MILLILITRE)?EVERY 1 WEEK(S) 20 DROPS?TWO TIMES PER WEEK
     Route: 048
     Dates: start: 20111005, end: 20221012
  8. BISOPROLOL FUMARATE [Concomitant]
     Active Substance: BISOPROLOL FUMARATE
     Dosage: 2.5 MILLIGRAM EVERY 24?HOUR(S) 1/2-0-0
  9. ASPIRIN\GLYCINE [Concomitant]
     Active Substance: ASPIRIN\GLYCINE
     Dosage: 100 MILLIGRAM EVERY 1?DAY(S) 1-0-0
     Route: 048
     Dates: start: 20101105, end: 20221012
  10. PANTOPRAZOLE SODIUM [Concomitant]
     Active Substance: PANTOPRAZOLE SODIUM
     Dosage: 20 MILLIGRAM EVERY 1?DAY(S) 1-0-0
     Route: 048
     Dates: start: 20221005, end: 20221012
  11. ESCITALOPRAM [Concomitant]
     Active Substance: ESCITALOPRAM OXALATE
     Dosage: 10 MILLIGRAM EVERY 1?DAY(S)

REACTIONS (5)
  - COVID-19 pneumonia [Recovered/Resolved]
  - Neutropenia [Recovered/Resolved]
  - Hypertransaminasaemia [Recovered/Resolved]
  - Respiratory tract infection [Recovered/Resolved]
  - Off label use [Unknown]

NARRATIVE: CASE EVENT DATE: 20210606
